FAERS Safety Report 21193237 (Version 8)
Quarter: 2023Q2

REPORT INFORMATION
  Report Type: Report from Study
  Country: CN (occurrence: CN)
  Receive Date: 20220810
  Receipt Date: 20230417
  Transmission Date: 20230722
  Serious: Yes (Hospitalization)
  Sender: FDA-Public Use
  Company Number: CN-ARGENX-2022-ARGX-CN001426

PATIENT
  Age: 51 Year
  Sex: Female
  Weight: 65 kg

DRUGS (14)
  1. EFGARTIGIMOD ALFA [Suspect]
     Active Substance: EFGARTIGIMOD ALFA
     Indication: Immune thrombocytopenia
     Dosage: 1000 MG, SINGLE
     Route: 058
     Dates: start: 20220601, end: 20220601
  2. EFGARTIGIMOD ALFA [Suspect]
     Active Substance: EFGARTIGIMOD ALFA
     Dosage: 1000 MG, SINGLE
     Route: 058
     Dates: start: 20220707, end: 20220707
  3. EFGARTIGIMOD ALFA [Suspect]
     Active Substance: EFGARTIGIMOD ALFA
     Dosage: 1000 MG, SINGLE
     Route: 058
     Dates: start: 20220713, end: 20220713
  4. EFGARTIGIMOD ALFA [Suspect]
     Active Substance: EFGARTIGIMOD ALFA
     Dosage: 1000 MG, SINGLE
     Route: 058
     Dates: start: 20220720, end: 20220720
  5. EFGARTIGIMOD ALFA [Suspect]
     Active Substance: EFGARTIGIMOD ALFA
     Dosage: 1000 MG, SINGLE
     Route: 058
     Dates: start: 20220727, end: 20220727
  6. EFGARTIGIMOD ALFA [Suspect]
     Active Substance: EFGARTIGIMOD ALFA
     Dosage: 1000 MG, SINGLE
     Route: 058
     Dates: start: 20220803, end: 20220803
  7. HYALURONIDASE (HUMAN RECOMBINANT) [Suspect]
     Active Substance: HYALURONIDASE (HUMAN RECOMBINANT)
     Indication: Immune thrombocytopenia
     Dosage: 1000 MG, SINGLE
     Route: 058
     Dates: start: 20220601, end: 20220804
  8. HYALURONIDASE (HUMAN RECOMBINANT) [Suspect]
     Active Substance: HYALURONIDASE (HUMAN RECOMBINANT)
     Dosage: 1000 MG, SINGLE
     Route: 058
     Dates: start: 20220707, end: 20220707
  9. HYALURONIDASE (HUMAN RECOMBINANT) [Suspect]
     Active Substance: HYALURONIDASE (HUMAN RECOMBINANT)
     Dosage: 1000 MG, SINGLE
     Route: 058
     Dates: start: 20220713, end: 20220713
  10. HYALURONIDASE (HUMAN RECOMBINANT) [Suspect]
     Active Substance: HYALURONIDASE (HUMAN RECOMBINANT)
     Dosage: 1000 MG, SINGLE
     Route: 058
     Dates: start: 20220720, end: 20220720
  11. HYALURONIDASE (HUMAN RECOMBINANT) [Suspect]
     Active Substance: HYALURONIDASE (HUMAN RECOMBINANT)
     Dosage: 1000 MG, SINGLE
     Route: 058
     Dates: start: 20220727, end: 20220727
  12. HYALURONIDASE (HUMAN RECOMBINANT) [Suspect]
     Active Substance: HYALURONIDASE (HUMAN RECOMBINANT)
     Dosage: 1000 MG, SINGLE
     Route: 058
     Dates: start: 20220803, end: 20220803
  13. BICYCLOL [Concomitant]
     Active Substance: BICYCLOL
     Indication: Product used for unknown indication
     Dosage: 50 MG, BID
     Route: 048
     Dates: start: 202105
  14. HERBALS\DIAMMONIUM GLYCYRRHIZINATE [Concomitant]
     Active Substance: HERBALS\DIAMMONIUM GLYCYRRHIZINATE
     Indication: Product used for unknown indication
     Dosage: 150 MG, TID
     Route: 048
     Dates: start: 202105

REACTIONS (1)
  - Gastrointestinal infection [Recovered/Resolved]

NARRATIVE: CASE EVENT DATE: 20220804
